FAERS Safety Report 8351514-3 (Version None)
Quarter: 2012Q2

REPORT INFORMATION
  Report Type: 
  Country: None (occurrence: None)
  Receive Date: 20120511
  Receipt Date: 20120503
  Transmission Date: 20120825
  Serious: Yes (Other)
  Sender: FDA-Public Use
  Company Number: US-MYLANLABS-2012S1009123

PATIENT
  Age: 35 Year
  Sex: Male

DRUGS (4)
  1. CLONIDINE [Concomitant]
     Indication: BLOOD PRESSURE INCREASED
     Route: 048
  2. CLONAZEPAM [Suspect]
     Indication: ANXIETY
     Route: 048
     Dates: start: 20111001
  3. LEXAPRO [Concomitant]
     Indication: ANXIETY
     Route: 048
  4. PROZAC [Concomitant]
     Indication: ANXIETY
     Route: 048

REACTIONS (5)
  - CONFUSIONAL STATE [None]
  - ANXIETY [None]
  - DRUG INEFFECTIVE FOR UNAPPROVED INDICATION [None]
  - DRUG SCREEN NEGATIVE [None]
  - DRUG WITHDRAWAL SYNDROME [None]
